FAERS Safety Report 9228609 (Version 3)
Quarter: 2013Q2

REPORT INFORMATION
  Report Type: Report from Study
  Country: MY (occurrence: MY)
  Receive Date: 20130412
  Receipt Date: 20130422
  Transmission Date: 20140414
  Serious: Yes (Life-Threatening)
  Sender: FDA-Public Use
  Company Number: MY-GLAXOSMITHKLINE-A1019733A

PATIENT
  Age: 32 Year
  Sex: Female
  Weight: 69.8 kg

DRUGS (2)
  1. BELIMUMAB [Suspect]
     Indication: SYSTEMIC LUPUS ERYTHEMATOSUS
     Dosage: 200MGML WEEKLY
     Route: 058
     Dates: start: 20121122
  2. HYDROXYCHLOROQUINE [Concomitant]
     Dosage: 400MG PER DAY

REACTIONS (1)
  - Suicidal ideation [Recovering/Resolving]
